FAERS Safety Report 15278395 (Version 4)
Quarter: 2018Q3

REPORT INFORMATION
  Report Type: Spontaneous
  Country: US (occurrence: US)
  Receive Date: 20180814
  Receipt Date: 20180907
  Transmission Date: 20181010
  Serious: Yes (Other)
  Sender: FDA-Public Use
  Company Number: US-AMGEN-USASP2018110462

PATIENT
  Sex: Female
  Weight: 86.18 kg

DRUGS (1)
  1. ENBREL [Suspect]
     Active Substance: ETANERCEPT
     Indication: RHEUMATOID ARTHRITIS
     Dosage: 50 MG, QWK
     Route: 058
     Dates: start: 20180625, end: 20180804

REACTIONS (10)
  - Asthenia [Recovered/Resolved]
  - Laryngitis [Recovering/Resolving]
  - Somnolence [Unknown]
  - Fatigue [Recovering/Resolving]
  - Nausea [Unknown]
  - Drug ineffective [Recovered/Resolved]
  - Decreased appetite [Unknown]
  - Rheumatoid arthritis [Recovered/Resolved]
  - Decreased interest [Unknown]
  - Dizziness [Unknown]

NARRATIVE: CASE EVENT DATE: 2018
